FAERS Safety Report 25856542 (Version 1)
Quarter: 2025Q3

REPORT INFORMATION
  Report Type: Spontaneous
  Country: US (occurrence: US)
  Receive Date: 20250929
  Receipt Date: 20250929
  Transmission Date: 20251020
  Serious: Yes (Hospitalization)
  Sender: INTERCEPT PHARMACEUTICALS
  Company Number: US-INTERCEPT-PM2025001883

PATIENT
  Sex: Female

DRUGS (8)
  1. OCALIVA [Suspect]
     Active Substance: OBETICHOLIC ACID
     Indication: Primary biliary cholangitis
     Dosage: 5 MILLIGRAM, QD
     Route: 048
     Dates: start: 202302
  2. URSODIOL [Concomitant]
     Active Substance: URSODIOL
  3. MELATONIN [Concomitant]
     Active Substance: MELATONIN
  4. VITAMINS NOS [Concomitant]
     Active Substance: VITAMINS
  5. ATORVASTATIN [Concomitant]
     Active Substance: ATORVASTATIN
  6. DULOXETINE [Concomitant]
     Active Substance: DULOXETINE
  7. LISINOPRIL [Concomitant]
     Active Substance: LISINOPRIL
  8. MOUNJARO [Concomitant]
     Active Substance: TIRZEPATIDE
     Route: 058

REACTIONS (1)
  - Knee operation [Not Recovered/Not Resolved]

NARRATIVE: CASE EVENT DATE: 20250101
